FAERS Safety Report 18875237 (Version 2)
Quarter: 2021Q4

REPORT INFORMATION
  Report Type: Spontaneous
  Country: US (occurrence: US)
  Receive Date: 20210211
  Receipt Date: 20211026
  Transmission Date: 20220303
  Serious: No
  Sender: FDA-Public Use
  Company Number: US-MTPC-MTDA2021-0003811

PATIENT
  Sex: Male

DRUGS (1)
  1. RADICAVA [Suspect]
     Active Substance: EDARAVONE
     Indication: Product used for unknown indication
     Dosage: UNK
     Route: 065

REACTIONS (2)
  - Condition aggravated [Unknown]
  - Disease progression [Unknown]
